FAERS Safety Report 14187778 (Version 1)
Quarter: 2017Q4

REPORT INFORMATION
  Report Type: Spontaneous
  Country: US (occurrence: None)
  Receive Date: 20171114
  Receipt Date: 20171114
  Transmission Date: 20180321
  Serious: Yes (Death)
  Sender: FDA-Public Use
  Company Number: None

PATIENT
  Age: 66 Year
  Sex: Male
  Weight: 95.26 kg

DRUGS (16)
  1. INDOMETHACIN 25MG CAPSULE [Suspect]
     Active Substance: INDOMETHACIN
     Indication: ARTHRITIS
     Dates: start: 20170901, end: 20170919
  2. ALBUTEROL INHAL AEROSOL (PROVENTIL) [Concomitant]
  3. NORVASC [Concomitant]
     Active Substance: AMLODIPINE BESYLATE
  4. ASPIRIN TAB DELAYED RELAYED RELEASE (ADULT ASPIRIN EC LOW STRE) [Concomitant]
  5. INSULIN ASPART (NOVOLOG) [Concomitant]
  6. LEVOTHYROXINE SODIUM (LEVOTHROID) [Concomitant]
  7. LOSARTAN POTASSIUM. [Concomitant]
     Active Substance: LOSARTAN POTASSIUM
  8. ALKA-SELTZER [Concomitant]
     Active Substance: ANHYDROUS CITRIC ACID\ASPIRIN\SODIUM BICARBONATE
  9. METFORMIN HCI (GLUCOPHAGE) [Concomitant]
  10. INDOMETHACIN 25MG CAPSULE [Suspect]
     Active Substance: INDOMETHACIN
     Indication: GOUT
     Dates: start: 20170901, end: 20170919
  11. GEMFIBROZIL (LOPID) [Concomitant]
  12. METOPROLOL TARTRATE (LOPRESSOR) [Concomitant]
  13. OMEPRAZOLE DELAYED RELEASE [Concomitant]
     Active Substance: OMEPRAZOLE
  14. DIABETIC VITAMINS [Concomitant]
  15. NEURONTIN [Concomitant]
     Active Substance: GABAPENTIN
  16. INSULIN DETEMIR (LEVEMIR) [Concomitant]

REACTIONS (2)
  - Cardiac arrest [None]
  - Fall [None]

NARRATIVE: CASE EVENT DATE: 20170912
